FAERS Safety Report 7510177-7 (Version None)
Quarter: 2011Q2

REPORT INFORMATION
  Report Type: 
  Country: None (occurrence: None)
  Receive Date: 20110527
  Receipt Date: 20110516
  Transmission Date: 20111010
  Serious: Yes (Disabling)
  Sender: FDA-Public Use
  Company Number: DE-UCBSA-032951

PATIENT
  Age: 70 Year
  Sex: Female

DRUGS (2)
  1. VIMPAT [Suspect]
     Indication: EPILEPSY
     Dates: start: 20110511
  2. KEPPRA [Suspect]
     Indication: EPILEPSY
     Dates: start: 20090101

REACTIONS (2)
  - RESTLESSNESS [None]
  - PARESIS [None]
